FAERS Safety Report 22971125 (Version 3)
Quarter: 2024Q3

REPORT INFORMATION
  Report Type: Spontaneous
  Country: US (occurrence: US)
  Receive Date: 20230922
  Receipt Date: 20240825
  Transmission Date: 20241016
  Serious: No
  Sender: NOVARTIS
  Company Number: US-002147023-NVSC2023US200257

PATIENT
  Sex: Male

DRUGS (2)
  1. PROMACTA [Suspect]
     Active Substance: ELTROMBOPAG OLAMINE
     Indication: Thrombocytopenia
     Dosage: 50 MG, QD
     Route: 048
     Dates: start: 202305
  2. PROMACTA [Suspect]
     Active Substance: ELTROMBOPAG OLAMINE
     Dosage: 25 MG, QD
     Route: 048
     Dates: start: 202305

REACTIONS (9)
  - Feeling abnormal [Unknown]
  - Fatigue [Unknown]
  - Cough [Unknown]
  - Headache [Unknown]
  - Hypersensitivity [Unknown]
  - Weight decreased [Unknown]
  - Vision blurred [Unknown]
  - Swelling [Unknown]
  - Pruritus [Unknown]
